FAERS Safety Report 7916561-1 (Version None)
Quarter: 2011Q4

REPORT INFORMATION
  Report Type: 
  Country: None (occurrence: None)
  Receive Date: 20111115
  Receipt Date: 20111019
  Transmission Date: 20120403
  Serious: Yes (Death)
  Sender: FDA-Public Use
  Company Number: 20909

PATIENT
  Sex: Female

DRUGS (1)
  1. GLASSIA [Suspect]
     Indication: ALPHA-1 ANTI-TRYPSIN DEFICIENCY
     Dosage: UNK, UNK, IV
     Route: 042
     Dates: end: 20110928

REACTIONS (1)
  - DEATH [None]
